FAERS Safety Report 11639448 (Version 1)
Quarter: 2015Q4

REPORT INFORMATION
  Report Type: Spontaneous
  Country: US (occurrence: None)
  Receive Date: 20151016
  Receipt Date: 20151016
  Transmission Date: 20160304
  Serious: Yes (Other)
  Sender: FDA-Public Use
  Company Number: None

PATIENT
  Age: 71 Year
  Sex: Male
  Weight: 106 kg

DRUGS (1)
  1. FENTANYL. [Suspect]
     Active Substance: FENTANYL
     Indication: POSTOPERATIVE ANALGESIA
     Dosage: HOURLY EPIDURAL 9/23-9/24

REACTIONS (1)
  - Hypotension [None]

NARRATIVE: CASE EVENT DATE: 20150924
